FAERS Safety Report 24094969 (Version 2)
Quarter: 2024Q3

REPORT INFORMATION
  Report Type: Spontaneous
  Country: GB (occurrence: GB)
  Receive Date: 20240716
  Receipt Date: 20240802
  Transmission Date: 20241017
  Serious: Yes (Other)
  Sender: TEVA
  Company Number: GB-TEVA-VS-3216974

PATIENT
  Age: 55 Year
  Sex: Male

DRUGS (3)
  1. PREDNISOLONE [Suspect]
     Active Substance: PREDNISOLONE
     Indication: Angiolymphoid hyperplasia with eosinophilia
     Route: 065
  2. PREDNISOLONE [Suspect]
     Active Substance: PREDNISOLONE
     Indication: Angiolymphoid hyperplasia with eosinophilia
     Route: 065
  3. CYCLOSPORINE [Suspect]
     Active Substance: CYCLOSPORINE
     Indication: Angiolymphoid hyperplasia with eosinophilia
     Route: 065

REACTIONS (6)
  - Depressed level of consciousness [Unknown]
  - Disorder of orbit [Recovering/Resolving]
  - Disturbance in attention [Unknown]
  - Condition aggravated [Recovering/Resolving]
  - Angiolymphoid hyperplasia with eosinophilia [Recovering/Resolving]
  - Rebound effect [Unknown]
